FAERS Safety Report 5712001-1 (Version None)
Quarter: 2008Q2

REPORT INFORMATION
  Report Type: 
  Country: None (occurrence: None)
  Receive Date: 20080416
  Receipt Date: 20080403
  Transmission Date: 20081010
  Serious: Yes (Hospitalization, Other)
  Sender: FDA-Public Use
  Company Number: DSA_31653_2008

PATIENT
  Sex: Male

DRUGS (2)
  1. LORAZEPAM [Suspect]
     Dosage: 10 DF 1X NOT THE PRESCRIBED AMOUNT ORAL
     Route: 048
     Dates: start: 20080322, end: 20080322
  2. ETHANOL (ALCOHOL-ETHANOL) [Suspect]
     Dates: start: 20080322, end: 20080322

REACTIONS (5)
  - ALCOHOL USE [None]
  - APATHY [None]
  - INTENTIONAL OVERDOSE [None]
  - SOMNOLENCE [None]
  - SUICIDE ATTEMPT [None]
